FAERS Safety Report 5928741-5 (Version None)
Quarter: 2008Q4

REPORT INFORMATION
  Report Type: 
  Country: None (occurrence: None)
  Receive Date: 20081023
  Receipt Date: 20081016
  Transmission Date: 20090506
  Serious: Yes (Other)
  Sender: FDA-Public Use
  Company Number: IE-MERCK-0810GBR00084

PATIENT
  Age: 52 Year
  Sex: Female

DRUGS (2)
  1. FOSAMAX [Suspect]
     Indication: OSTEOPOROSIS
     Route: 048
  2. NIMESULIDE [Suspect]
     Indication: ARTHRITIS
     Route: 048

REACTIONS (2)
  - DUODENAL ULCER [None]
  - HAEMATEMESIS [None]
